FAERS Safety Report 9895429 (Version 2)
Quarter: 2014Q1

REPORT INFORMATION
  Report Type: Spontaneous
  Country: US (occurrence: US)
  Receive Date: 20140213
  Receipt Date: 20140213
  Transmission Date: 20141002
  Serious: No
  Sender: FDA-Public Use
  Company Number: US-BRISTOL-MYERS SQUIBB COMPANY-17366121

PATIENT
  Age: 66 Year
  Sex: Female

DRUGS (1)
  1. ORENCIA [Suspect]
     Indication: RHEUMATOID ARTHRITIS
     Dosage: LAST INFUSION WAS ON 06FEB2013
     Route: 042
     Dates: start: 20130124

REACTIONS (6)
  - Fatigue [Unknown]
  - Poor quality sleep [Unknown]
  - Dizziness [Unknown]
  - Headache [Unknown]
  - Feeling abnormal [Unknown]
  - Somnolence [Unknown]
